FAERS Safety Report 9414860 (Version 3)
Quarter: 2014Q1

REPORT INFORMATION
  Report Type: Report from Study
  Country: BR (occurrence: BR)
  Receive Date: 20130723
  Receipt Date: 20140327
  Transmission Date: 20141002
  Serious: Yes (Hospitalization, Other)
  Sender: FDA-Public Use
  Company Number: BR-ROCHE-1236094

PATIENT
  Sex: Female
  Weight: 61 kg

DRUGS (12)
  1. ACTEMRA [Suspect]
     Indication: RHEUMATOID ARTHRITIS
     Route: 042
     Dates: start: 20130101
  2. MABTHERA [Suspect]
     Indication: RHEUMATOID ARTHRITIS
     Dosage: MOST RECENT INFUSION ON 13/FEB/2014
     Route: 042
     Dates: start: 201308
  3. AMLODIPINE BESYLATE [Concomitant]
     Indication: HYPERTENSION
  4. LABIRIN [Concomitant]
     Indication: LABYRINTHITIS
  5. RIVOTRIL [Concomitant]
     Indication: LABYRINTHITIS
  6. CALCIUM CARBONATE [Concomitant]
     Indication: OSTEOPENIA
  7. PREDNISOLONE [Concomitant]
     Indication: RHEUMATOID ARTHRITIS
  8. METHOTREXATE [Concomitant]
     Indication: RHEUMATOID ARTHRITIS
     Route: 065
  9. RANITIDINE [Concomitant]
  10. CHLOROQUINE [Concomitant]
  11. KETOPROFEN CREME [Concomitant]
  12. FAMOTIDINE [Concomitant]

REACTIONS (14)
  - Polyarthritis [Unknown]
  - Leukocytosis [Recovering/Resolving]
  - Ear infection [Recovered/Resolved with Sequelae]
  - Inner ear disorder [Not Recovered/Not Resolved]
  - Therapeutic response decreased [Unknown]
  - Rheumatoid factor increased [Unknown]
  - Hearing impaired [Unknown]
  - Rheumatoid arthritis [Recovering/Resolving]
  - Pain [Not Recovered/Not Resolved]
  - Episcleritis [Not Recovered/Not Resolved]
  - Musculoskeletal pain [Not Recovered/Not Resolved]
  - Arthralgia [Not Recovered/Not Resolved]
  - Bone pain [Not Recovered/Not Resolved]
  - Arthralgia [Not Recovered/Not Resolved]
